FAERS Safety Report 7882550-9 (Version None)
Quarter: 2011Q4

REPORT INFORMATION
  Report Type: 
  Country: None (occurrence: None)
  Receive Date: 20111101
  Receipt Date: 20110616
  Transmission Date: 20120403
  Serious: No
  Sender: FDA-Public Use
  Company Number: US-AMGEN-USASP2011030820

PATIENT
  Sex: Female

DRUGS (1)
  1. ENBREL [Suspect]
     Indication: PSORIATIC ARTHROPATHY
     Dosage: 50 MG, QWK
     Dates: start: 20101001

REACTIONS (5)
  - DRY MOUTH [None]
  - INJECTION SITE PAIN [None]
  - FATIGUE [None]
  - INJECTION SITE HAEMORRHAGE [None]
  - TOOTH DISORDER [None]
